FAERS Safety Report 20778457 (Version 5)
Quarter: 2024Q4

REPORT INFORMATION
  Report Type: Spontaneous
  Country: US (occurrence: US)
  Receive Date: 20220503
  Receipt Date: 20241211
  Transmission Date: 20250115
  Serious: Yes (Hospitalization, Other)
  Sender: AMNEAL
  Company Number: US-AMNEAL PHARMACEUTICALS-2021-AMRX-04573

PATIENT
  Age: 4 Year
  Sex: Female
  Weight: 48.9 kg

DRUGS (11)
  1. VIGABATRIN [Suspect]
     Active Substance: VIGABATRIN
     Indication: Seizure
     Dosage: 120 MILLIGRAM, 2 /DAY
     Route: 048
     Dates: start: 2018, end: 20211101
  2. VIGABATRIN [Suspect]
     Active Substance: VIGABATRIN
     Indication: Epilepsy
     Dosage: 145 MILLIGRAM, 2 /DAY
     Route: 048
     Dates: start: 20211101
  3. VIGABATRIN [Suspect]
     Active Substance: VIGABATRIN
     Indication: Infantile spasms
     Dosage: MIX 3 PACKETS IN 30 ML OF WATER AND GIVE / TAKE: 25 ML (1250 MG) VIA G.TUBE TWICE DAILY, DISCARD ANY
     Route: 048
  4. VIGABATRIN [Suspect]
     Active Substance: VIGABATRIN
     Dosage: MIX 3 PACKETS IN 30 ML OF WATER AND GIVE / TAKE 25 ML (1250 MG) VIA G-TUBE TWICE DAILY, DISCARD ANY
     Route: 048
  5. EPIDIOLEX [Concomitant]
     Active Substance: CANNABIDIOL
     Indication: Product used for unknown indication
     Dosage: 1.5 MILLILITER, BID
     Route: 048
  6. KEPPRA [Concomitant]
     Active Substance: LEVETIRACETAM
     Indication: Product used for unknown indication
     Dosage: UNK
     Route: 065
  7. KEPPRA [Concomitant]
     Active Substance: LEVETIRACETAM
     Dosage: 250 MILLIGRAM TABLET
     Route: 065
  8. TOPIRAMATE [Concomitant]
     Active Substance: TOPIRAMATE
     Indication: Product used for unknown indication
     Dosage: UNK
     Route: 065
  9. BANZEL [Concomitant]
     Active Substance: RUFINAMIDE
     Indication: Product used for unknown indication
     Dosage: 400 MILLIGRAM TABLET
     Route: 065
  10. VALPROIC ACID [Concomitant]
     Active Substance: VALPROIC ACID
     Indication: Product used for unknown indication
     Dosage: 250 MG /5 ML SOLUTION
     Route: 065
  11. ZTALMY [Concomitant]
     Active Substance: GANAXOLONE
     Indication: Product used for unknown indication
     Dosage: UNK
     Route: 065

REACTIONS (6)
  - Hospitalisation [Unknown]
  - Rhinovirus infection [Unknown]
  - COVID-19 [Unknown]
  - Seizure [Unknown]
  - Lethargy [Not Recovered/Not Resolved]
  - Somnolence [Not Recovered/Not Resolved]

NARRATIVE: CASE EVENT DATE: 20211101
